FAERS Safety Report 19643516 (Version 1)
Quarter: 2021Q3

REPORT INFORMATION
  Report Type: Report from Study
  Country: US (occurrence: US)
  Receive Date: 20210730
  Receipt Date: 20210730
  Transmission Date: 20211014
  Serious: Yes (Hospitalization, Other)
  Sender: FDA-Public Use
  Company Number: US-BRISTOL-MYERS SQUIBB COMPANY-BMS-2021-075168

PATIENT
  Age: 49 Year
  Sex: Female
  Weight: 68.9 kg

DRUGS (2)
  1. NIVOLUMAB [Suspect]
     Active Substance: NIVOLUMAB
     Indication: OVARIAN CLEAR CELL CARCINOMA
     Dosage: 480 MILLIGRAM
     Route: 042
     Dates: start: 20210205
  2. LUCITANIB. [Suspect]
     Active Substance: LUCITANIB
     Indication: OVARIAN CLEAR CELL CARCINOMA
     Dosage: 6 MILLIGRAM, QD
     Route: 048
     Dates: start: 20210205

REACTIONS (2)
  - Cholecystitis [Not Recovered/Not Resolved]
  - Troponin increased [Not Recovered/Not Resolved]

NARRATIVE: CASE EVENT DATE: 20210718
